FAERS Safety Report 6975697-2 (Version None)
Quarter: 2010Q3

REPORT INFORMATION
  Report Type: 
  Country: None (occurrence: None)
  Receive Date: 20100910
  Receipt Date: 20100830
  Transmission Date: 20110219
  Serious: Yes (Other)
  Sender: FDA-Public Use
  Company Number: US-EISAI INC.-E3810-04053-SPO-US

PATIENT
  Sex: Female
  Weight: 75 kg

DRUGS (2)
  1. ACIPHEX [Suspect]
     Indication: GASTROOESOPHAGEAL REFLUX DISEASE
     Route: 048
     Dates: start: 20091117, end: 20100821
  2. LEVOXYL [Concomitant]
     Indication: HYPERTHYROIDISM
     Route: 048
     Dates: start: 20060101

REACTIONS (6)
  - ACNE [None]
  - FIBROMYALGIA [None]
  - HEADACHE [None]
  - OEDEMA PERIPHERAL [None]
  - PAIN [None]
  - TYPE 2 DIABETES MELLITUS [None]
